FAERS Safety Report 9561833 (Version 1)
Quarter: 2013Q3

REPORT INFORMATION
  Report Type: Spontaneous
  Country: MA (occurrence: None)
  Receive Date: 20130925
  Receipt Date: 20130925
  Transmission Date: 20140515
  Serious: Yes (Hospitalization)
  Sender: FDA-Public Use
  Company Number: FK201304324

PATIENT
  Age: 46 Year
  Sex: Female

DRUGS (3)
  1. FLUOROURACIL [Suspect]
     Indication: INVASIVE DUCTAL BREAST CARCINOMA
  2. CYCLOPHOSPHAMIDE (CYCLOPHOSPHAMIDE) [Concomitant]
  3. DOXORUBICIN (DOXORUBICIN) [Concomitant]

REACTIONS (1)
  - Ischaemic stroke [None]
